FAERS Safety Report 4902004-9 (Version None)
Quarter: 2006Q1

REPORT INFORMATION
  Report Type: 
  Country: None (occurrence: None)
  Receive Date: 20060201
  Receipt Date: 20060201
  Transmission Date: 20060701
  Serious: No
  Sender: FDA-Public Use
  Company Number: None

PATIENT
  Age: 53 Year
  Sex: Male
  Weight: 89.3586 kg

DRUGS (3)
  1. OXALIPLATIN [Suspect]
     Indication: OESOPHAGEAL CANCER METASTATIC
     Dosage: 130MG/M2 IV Q 3 WKS
     Route: 030
     Dates: start: 20060110
  2. DOCETAXEL [Suspect]
     Indication: OESOPHAGEAL CANCER METASTATIC
     Dosage: 45MG/M2 IV Q WK 2 OF 3
     Route: 042
     Dates: start: 20060110
  3. DOCETAXEL [Suspect]
     Indication: OESOPHAGEAL CANCER METASTATIC
     Dosage: 45MG/M2 IV Q WK 2 OF 3
     Route: 042
     Dates: start: 20060117

REACTIONS (1)
  - NEUTROPENIA [None]
